FAERS Safety Report 7587337-2 (Version None)
Quarter: 2011Q3

REPORT INFORMATION
  Report Type: 
  Country: None (occurrence: None)
  Receive Date: 20110701
  Receipt Date: 20110608
  Transmission Date: 20111222
  Serious: Yes (Other)
  Sender: FDA-Public Use
  Company Number: IT-PFIZER INC-2011146059

PATIENT

DRUGS (3)
  1. REPAGLINIDE [Concomitant]
     Dosage: 0.5 (UNKNOWN UNITS AND FREQUENCY)
     Route: 048
     Dates: start: 20101012
  2. TORISEL [Suspect]
     Indication: RENAL CANCER
     Dosage: 25 MG, WEEKLY
     Route: 042
     Dates: start: 20100907, end: 20101019
  3. SIMVASTATIN [Concomitant]
     Dosage: 20 MG
     Route: 048
     Dates: start: 20100921

REACTIONS (4)
  - PROTEINURIA [None]
  - HYPOKALAEMIA [None]
  - SKIN TOXICITY [None]
  - RENAL FAILURE ACUTE [None]
